FAERS Safety Report 6635176-9 (Version None)
Quarter: 2010Q1

REPORT INFORMATION
  Report Type: 
  Country: None (occurrence: None)
  Receive Date: 20100315
  Receipt Date: 20100303
  Transmission Date: 20100710
  Serious: Yes (Other)
  Sender: FDA-Public Use
  Company Number: BR-ROCHE-688866

PATIENT
  Sex: Male
  Weight: 74 kg

DRUGS (1)
  1. ROACUTAN [Suspect]
     Indication: ACNE
     Dosage: BATCH NUMBER OF ONE PACKAGE: B4480801
     Route: 048
     Dates: start: 20090501, end: 20090701

REACTIONS (6)
  - ALOPECIA [None]
  - GASTRITIS EROSIVE [None]
  - HAEMORRHAGIC EROSIVE GASTRITIS [None]
  - OESOPHAGITIS HAEMORRHAGIC [None]
  - PAIN [None]
  - WEIGHT DECREASED [None]
